FAERS Safety Report 9364535 (Version 1)
Quarter: 2013Q2

REPORT INFORMATION
  Report Type: Spontaneous
  Country: IR (occurrence: IR)
  Receive Date: 20130624
  Receipt Date: 20130624
  Transmission Date: 20140414
  Serious: Yes (Death, Other)
  Sender: FDA-Public Use
  Company Number: IR-WATSON-2013-10918

PATIENT
  Age: 30 Year
  Sex: Female

DRUGS (6)
  1. CYCLOPHOSPHAMIDE (UNKNOWN) [Suspect]
     Indication: PLASMABLASTIC LYMPHOMA
     Dosage: UNKNOWN, 5 COURSES
     Route: 065
  2. PREDNISONE (UNKNOWN) [Suspect]
     Indication: PLASMABLASTIC LYMPHOMA
     Dosage: UNKNOWN, 5 COURSES
     Route: 065
  3. DOXORUBICIN (UNKNOWN) [Suspect]
     Indication: PLASMABLASTIC LYMPHOMA
     Dosage: UNKNOWN, 5 COURSES
     Route: 065
  4. VINCRISTINE (UNKNOWN) [Suspect]
     Indication: PLASMABLASTIC LYMPHOMA
     Dosage: UNKNOWN, 5 COURSES
     Route: 065
  5. ENALAPRIL [Concomitant]
     Indication: PRODUCT USED FOR UNKNOWN INDICATION
     Dosage: 5 MG, DAILY
     Route: 065
  6. NIFEDIPINE [Concomitant]
     Indication: PRODUCT USED FOR UNKNOWN INDICATION
     Dosage: 10 MG, TID
     Route: 065

REACTIONS (2)
  - Sepsis [Fatal]
  - Pneumonia [Fatal]
